FAERS Safety Report 23291757 (Version 3)
Quarter: 2024Q1

REPORT INFORMATION
  Report Type: Spontaneous
  Country: US (occurrence: US)
  Receive Date: 20231213
  Receipt Date: 20240304
  Transmission Date: 20240410
  Serious: No
  Sender: FDA-Public Use
  Company Number: US-BRISTOL-MYERS SQUIBB COMPANY-2023-179942

PATIENT
  Age: 81 Year
  Sex: Female

DRUGS (2)
  1. IDHIFA [Suspect]
     Active Substance: ENASIDENIB MESYLATE
     Indication: Product used for unknown indication
     Dosage: FREQ : TAKE 1 TABLET BY MOUTH ONCE DAILY. TAKE WITH OR WITHOUT FOOD ATAPPROXIMATELY THE SAME TIME EA
     Route: 048
  2. IDHIFA [Suspect]
     Active Substance: ENASIDENIB MESYLATE
     Dosage: STRENGTH-50 MILLIGRAM
     Route: 048

REACTIONS (7)
  - Illness [Unknown]
  - Renal disorder [Unknown]
  - Gout [Unknown]
  - Diarrhoea [Unknown]
  - Blood magnesium decreased [Unknown]
  - Cardiac disorder [Unknown]
  - Red blood cell count decreased [Unknown]

NARRATIVE: CASE EVENT DATE: 20231208
